FAERS Safety Report 22192749 (Version 1)
Quarter: 2023Q2

REPORT INFORMATION
  Report Type: Spontaneous
  Country: US (occurrence: None)
  Receive Date: 20230410
  Receipt Date: 20230410
  Transmission Date: 20230721
  Serious: Yes (Other)
  Sender: FDA-Public Use
  Company Number: None

PATIENT
  Age: 68 Year
  Sex: Male
  Weight: 62.5 kg

DRUGS (3)
  1. PACLITAXEL [Suspect]
     Active Substance: PACLITAXEL
     Indication: Laryngeal cancer
     Dosage: FREQUENCY : WEEKLY;?
     Route: 041
     Dates: start: 20230310
  2. Ketruda 200mg IVPB  over 30 min start  1424 [Concomitant]
     Dates: start: 20230310
  3. PACLITAXEL [Suspect]
     Active Substance: PACLITAXEL
     Indication: Gastric cancer

REACTIONS (2)
  - Dyspnoea [None]
  - Blood pressure decreased [None]

NARRATIVE: CASE EVENT DATE: 20230310
